FAERS Safety Report 12545106 (Version 1)
Quarter: 2016Q3

REPORT INFORMATION
  Report Type: Spontaneous
  Country: JP (occurrence: JP)
  Receive Date: 20160711
  Receipt Date: 20160711
  Transmission Date: 20161109
  Serious: Yes (Other)
  Sender: FDA-Public Use
  Company Number: JP-PFIZER INC-2016230729

PATIENT
  Age: 83 Year
  Sex: Male

DRUGS (21)
  1. LOXONIN [Concomitant]
     Active Substance: LOXOPROFEN SODIUM
     Dosage: 60 MG, 3X/DAY AFTER EACH MEAL
     Route: 048
     Dates: start: 20160402
  2. TEPRENONE [Concomitant]
     Active Substance: TEPRENONE
     Dosage: 50 MG, 3X/DAY AFTER EACH MEAL
     Route: 048
     Dates: start: 20160305
  3. DICLOFENAC SODIUM. [Concomitant]
     Active Substance: DICLOFENAC SODIUM
     Dosage: 25 MG, 3X/DAY AFTER EACH MEAL
     Route: 048
     Dates: start: 20160305
  4. VOLTAREN [Suspect]
     Active Substance: DICLOFENAC SODIUM
     Dosage: UNK
  5. FORTEO [Concomitant]
     Active Substance: TERIPARATIDE
     Dosage: UNK
     Route: 058
     Dates: start: 20160413
  6. FORTEO [Concomitant]
     Active Substance: TERIPARATIDE
     Dosage: UNK
     Route: 058
     Dates: start: 20160608
  7. LOXONIN [Concomitant]
     Active Substance: LOXOPROFEN SODIUM
     Dosage: 60 MG, 3X/DAY AFTER EACH MEAL
     Route: 048
     Dates: start: 20160130, end: 20160211
  8. LOXONIN [Concomitant]
     Active Substance: LOXOPROFEN SODIUM
     Dosage: 60 MG, 2X/DAY AFTER BREAKFAST AND DINNER
     Route: 048
     Dates: start: 20160212
  9. TEPRENONE [Concomitant]
     Active Substance: TEPRENONE
     Dosage: 50 MG, 3X/DAY AFTER EACH MEAL
     Route: 048
     Dates: start: 20160130
  10. TEPRENONE [Concomitant]
     Active Substance: TEPRENONE
     Dosage: 50 MG, 3X/DAY AFTER EACH MEAL
     Route: 048
     Dates: start: 20160402
  11. SENNOSIDE [Concomitant]
     Active Substance: SENNOSIDES
     Dosage: 24 MG, 1X/DAY AT BEDTIME
     Route: 048
     Dates: start: 20160305
  12. LYRICA [Suspect]
     Active Substance: PREGABALIN
     Dosage: 50 MG, 1X/DAY BEFORE BEDTIME
     Route: 048
     Dates: start: 20160130, end: 20160219
  13. NEXIUM [Concomitant]
     Active Substance: ESOMEPRAZOLE MAGNESIUM
     Dosage: 20 MG, 1X/DAY AFTER BREAKFAST
     Route: 048
     Dates: start: 20160212
  14. FORTEO [Concomitant]
     Active Substance: TERIPARATIDE
     Dosage: 600 UG, DAILY
     Route: 058
     Dates: start: 20160215
  15. FORTEO [Concomitant]
     Active Substance: TERIPARATIDE
     Dosage: 600 UG, DAILY
     Route: 058
     Dates: start: 20160315
  16. LYRICA [Suspect]
     Active Substance: PREGABALIN
     Dosage: 25 MG AFTER BREAKFAST AND 75 MG BEFORE BEDTIME
     Route: 048
     Dates: start: 20160220, end: 20160510
  17. TOUCHRON TAPE [Concomitant]
     Dosage: 40 MG, 1X/DAY (TOTALING 35 SHEETS)
     Route: 061
     Dates: start: 20160212
  18. FORTEO [Concomitant]
     Active Substance: TERIPARATIDE
     Dosage: UNK
     Route: 058
     Dates: start: 20160511
  19. TOUCHRON HAP [Concomitant]
     Dosage: 30 MG, 2X/DAY (TOTALING 21 SHEETS)
     Route: 061
     Dates: start: 20160402
  20. LYRICA [Suspect]
     Active Substance: PREGABALIN
     Dosage: 75 MG, 1X/DAY BEFORE BEDTIME
     Route: 048
     Dates: start: 20160511
  21. TOUCHRON HAP [Concomitant]
     Dosage: 30 MG, UNK
     Route: 061
     Dates: start: 20160220

REACTIONS (3)
  - Large intestinal haemorrhage [Unknown]
  - Gastrointestinal haemorrhage [Unknown]
  - Melaena [Unknown]

NARRATIVE: CASE EVENT DATE: 201603
